FAERS Safety Report 7075263-7 (Version None)
Quarter: 2010Q4

REPORT INFORMATION
  Report Type: 
  Country: None (occurrence: None)
  Receive Date: 20101030
  Receipt Date: 20100819
  Transmission Date: 20110411
  Serious: No
  Sender: FDA-Public Use
  Company Number: US-WYE-H16243410

PATIENT
  Age: 49 Year
  Sex: Female
  Weight: 90.8 kg

DRUGS (1)
  1. ALAVERT D-12 [Suspect]
     Indication: RASH
     Dosage: 1 TAB
     Route: 065

REACTIONS (1)
  - DRUG INEFFECTIVE [None]
